FAERS Safety Report 24443409 (Version 1)
Quarter: 2024Q4

REPORT INFORMATION
  Report Type: Spontaneous
  Country: US (occurrence: US)
  Receive Date: 20241016
  Receipt Date: 20241016
  Transmission Date: 20250114
  Serious: No
  Sender: SANDOZ
  Company Number: US-002147023-NVSC2024US004903

PATIENT
  Age: 52 Year
  Sex: Female
  Weight: 89.8 kg

DRUGS (4)
  1. COMBIPATCH [Suspect]
     Active Substance: ESTRADIOL\NORETHINDRONE ACETATE
     Indication: Menopause
     Dosage: UNK
     Route: 062
     Dates: start: 2023
  2. COMBIPATCH [Suspect]
     Active Substance: ESTRADIOL\NORETHINDRONE ACETATE
     Dosage: UNK
     Route: 065
  3. FLUVOXAMINE [Suspect]
     Active Substance: FLUVOXAMINE
     Indication: Depression
     Dosage: 200 MG
     Route: 065
     Dates: start: 2023
  4. MYRBETRIQ [Suspect]
     Active Substance: MIRABEGRON
     Indication: Pollakiuria
     Dosage: 50 MG, QD
     Route: 065
     Dates: start: 2023

REACTIONS (5)
  - Pollakiuria [Unknown]
  - Breast tenderness [Unknown]
  - Vaginal haemorrhage [Unknown]
  - Product administered at inappropriate site [Recovering/Resolving]
  - Intentional product use issue [Recovering/Resolving]

NARRATIVE: CASE EVENT DATE: 20230101
